FAERS Safety Report 7400489-X (Version None)
Quarter: 2011Q2

REPORT INFORMATION
  Report Type: 
  Country: None (occurrence: None)
  Receive Date: 20110407
  Receipt Date: 20110331
  Transmission Date: 20111010
  Serious: Yes (Disabling, Other)
  Sender: FDA-Public Use
  Company Number: US-PFIZER INC-2011072412

PATIENT
  Sex: Female
  Weight: 95.238 kg

DRUGS (2)
  1. EFFEXOR XR [Suspect]
     Indication: DEPRESSION
     Dosage: UNK
     Dates: end: 20110301
  2. VITAMIN E [Concomitant]
     Dosage: UNK

REACTIONS (3)
  - MENTAL IMPAIRMENT [None]
  - EYE MOVEMENT DISORDER [None]
  - WITHDRAWAL SYNDROME [None]
